FAERS Safety Report 8837151 (Version 2)
Quarter: 2013Q1

REPORT INFORMATION
  Report Type: Spontaneous
  Country: BR (occurrence: BR)
  Receive Date: 20121012
  Receipt Date: 20130321
  Transmission Date: 20140127
  Serious: Yes (Hospitalization, Other)
  Sender: FDA-Public Use
  Company Number: PHHY2012BR090495

PATIENT
  Sex: Female

DRUGS (8)
  1. DIOVAN AMLO FIX [Suspect]
     Indication: HYPERTENSION
     Dosage: 1 DF (160/5MG) IN THE MORNING
  2. DIOVAN AMLO FIX [Suspect]
     Indication: OBESITY
  3. DAFLON 500 [Concomitant]
     Indication: VARICOSE VEIN
     Dosage: 3 DF, DAILY
     Route: 048
  4. AAS [Concomitant]
     Indication: HYPERTENSION
     Dosage: 1 DF, DAILY
     Route: 048
     Dates: start: 201209
  5. ENALAPRIL [Concomitant]
     Indication: HYPERTENSION
     Dosage: 2 DF, DAILY
     Route: 048
     Dates: start: 201209
  6. INDAPEN [Concomitant]
     Indication: HYPERTENSION
     Dosage: 1 DF, DAILY
     Route: 048
     Dates: start: 201209
  7. SIMVASTATIN [Concomitant]
     Indication: BLOOD CHOLESTEROL INCREASED
     Dosage: 1 DF, DAY
     Route: 048
  8. GLIFAGE [Concomitant]
     Indication: DIABETES MELLITUS
     Dosage: 4 DF, DAILY
     Route: 048
     Dates: start: 201209

REACTIONS (2)
  - Thrombosis [Recovering/Resolving]
  - Diabetes mellitus [Unknown]
